FAERS Safety Report 24459037 (Version 1)
Quarter: 2024Q4

REPORT INFORMATION
  Report Type: Spontaneous
  Country: US (occurrence: None)
  Receive Date: 20241017
  Receipt Date: 20241017
  Transmission Date: 20250115
  Serious: No
  Sender: Public
  Company Number: None

PATIENT
  Age: 34 Year
  Sex: Female

DRUGS (11)
  1. HUMIRA [Suspect]
     Active Substance: ADALIMUMAB
     Indication: Hidradenitis
     Dosage: OTHER QUANTITY : 40/0.4 MG/ML;?FREQUENCY : WEEKLY;?
     Route: 058
     Dates: start: 20240829, end: 202410
  2. ONDANSETRON [Concomitant]
     Active Substance: ONDANSETRON
  3. PANTOPRAZOLE [Concomitant]
     Active Substance: PANTOPRAZOLE
  4. PRAZOSIN HYDROCHLORIDE [Concomitant]
     Active Substance: PRAZOSIN HYDROCHLORIDE
  5. SENNA [Concomitant]
     Active Substance: SENNA LEAF\SENNOSIDES\SENNOSIDES A AND B
  6. SPIRONOLACTONE [Concomitant]
     Active Substance: SPIRONOLACTONE
  7. TOPIRAMATE [Concomitant]
     Active Substance: TOPIRAMATE
  8. ADDERALL XR [Concomitant]
     Active Substance: AMPHETAMINE ASPARTATE\AMPHETAMINE SULFATE\DEXTROAMPHETAMINE SACCHARATE\DEXTROAMPHETAMINE SULFATE
  9. AMBIEN [Concomitant]
     Active Substance: ZOLPIDEM TARTRATE
  10. BUPROPION [Concomitant]
     Active Substance: BUPROPION
  11. CLINDAMYCIN [Concomitant]
     Active Substance: CLINDAMYCIN

REACTIONS (10)
  - Kidney infection [None]
  - Urinary tract infection [None]
  - Cystitis [None]
  - Pain [None]
  - Dyspnoea [None]
  - Chest pain [None]
  - Peripheral swelling [None]
  - Joint swelling [None]
  - Feeling abnormal [None]
  - Urinary retention [None]

NARRATIVE: CASE EVENT DATE: 20240913
